FAERS Safety Report 16928297 (Version 2)
Quarter: 2019Q4

REPORT INFORMATION
  Report Type: Spontaneous
  Country: SG (occurrence: SG)
  Receive Date: 20191017
  Receipt Date: 20191204
  Transmission Date: 20200122
  Serious: Yes (Life-Threatening, Hospitalization, Other)
  Sender: FDA-Public Use
  Company Number: SG-LUPIN PHARMACEUTICALS INC.-2019-06668

PATIENT
  Age: 25 Year
  Sex: Male

DRUGS (2)
  1. AMLODIPINE [Suspect]
     Active Substance: AMLODIPINE BESYLATE
     Indication: SUICIDE ATTEMPT
     Dosage: 110 DOSAGE FORM, SINGLE (550 MG)
     Route: 048
  2. PARACETAMOL [Suspect]
     Active Substance: ACETAMINOPHEN
     Indication: SUICIDE ATTEMPT
     Dosage: 25 DOSAGE FORM, SINGLE (13 GRAM)
     Route: 048

REACTIONS (14)
  - Shock [Recovering/Resolving]
  - Hypokalaemia [Recovering/Resolving]
  - White blood cell count increased [Recovering/Resolving]
  - Cardiotoxicity [Unknown]
  - Left ventricular dysfunction [Unknown]
  - Somnolence [Recovering/Resolving]
  - Drug level increased [Recovering/Resolving]
  - Intentional overdose [Unknown]
  - Tachycardia [Recovering/Resolving]
  - Lactic acidosis [Recovering/Resolving]
  - Toxicity to various agents [Recovering/Resolving]
  - Mental status changes [Recovering/Resolving]
  - Hypotension [Recovering/Resolving]
  - Right ventricular dysfunction [Unknown]
